FAERS Safety Report 7386567-2 (Version None)
Quarter: 2011Q1

REPORT INFORMATION
  Report Type: 
  Country: None (occurrence: None)
  Receive Date: 20110331
  Receipt Date: 20110323
  Transmission Date: 20110831
  Serious: Yes (Death, Life-Threatening, Other)
  Sender: FDA-Public Use
  Company Number: JP-ROCHE-727835

PATIENT
  Sex: Female
  Weight: 39 kg

DRUGS (7)
  1. XELODA [Suspect]
     Route: 048
     Dates: start: 20100120, end: 20100624
  2. TOPOTECAN [Suspect]
     Route: 041
     Dates: start: 20100720, end: 20100803
  3. FLUOROURACIL [Suspect]
     Dosage: FREQUENCY NOT PROVIDED.
     Route: 041
     Dates: start: 20100720, end: 20100803
  4. GASTER D [Concomitant]
     Route: 048
     Dates: start: 20100720, end: 20100807
  5. AVASTIN [Suspect]
     Indication: LARGE INTESTINE CARCINOMA
     Route: 041
     Dates: start: 20100120, end: 20100720
  6. OXALIPLATIN [Suspect]
     Dosage: FREQUENCY : UNKNOWN
     Route: 041
     Dates: start: 20100120, end: 20100624
  7. CELECOXIB [Concomitant]
     Route: 048
     Dates: start: 20100720, end: 20100807

REACTIONS (5)
  - IMPAIRED HEALING [None]
  - PERITONITIS [None]
  - RETROPERITONEAL ABSCESS [None]
  - DISEASE PROGRESSION [None]
  - TUMOUR PERFORATION [None]
